FAERS Safety Report 24286708 (Version 2)
Quarter: 2024Q4

REPORT INFORMATION
  Report Type: Spontaneous
  Country: US (occurrence: US)
  Receive Date: 20240905
  Receipt Date: 20241004
  Transmission Date: 20250115
  Serious: No
  Sender: SANOFI AVENTIS
  Company Number: US-SA-2024SA256285

PATIENT
  Age: 17 Year
  Sex: Female
  Weight: 74 kg

DRUGS (1)
  1. DUPIXENT [Suspect]
     Active Substance: DUPILUMAB
     Indication: Eosinophilic oesophagitis
     Dosage: 300 MG, QW
     Route: 058
     Dates: start: 202407

REACTIONS (4)
  - Staphylococcal infection [Not Recovered/Not Resolved]
  - Viral infection [Not Recovered/Not Resolved]
  - Impetigo [Recovering/Resolving]
  - Injection site rash [Unknown]

NARRATIVE: CASE EVENT DATE: 20240101
